FAERS Safety Report 22524468 (Version 2)
Quarter: 2023Q2

REPORT INFORMATION
  Report Type: Report from Study
  Country: NL (occurrence: NL)
  Receive Date: 20230606
  Receipt Date: 20230621
  Transmission Date: 20230722
  Serious: Yes (Hospitalization, Other)
  Sender: FDA-Public Use
  Company Number: NL-BIOGEN-2023BI01208681

PATIENT
  Sex: Female

DRUGS (3)
  1. PLEGRIDY [Suspect]
     Active Substance: PEGINTERFERON BETA-1A
     Indication: Relapsing-remitting multiple sclerosis
     Route: 050
     Dates: start: 20230502
  2. PLEGRIDY [Suspect]
     Active Substance: PEGINTERFERON BETA-1A
     Route: 050
     Dates: start: 20230529
  3. AMITRIPTYLINE [Concomitant]
     Active Substance: AMITRIPTYLINE
     Indication: Neuralgia
     Route: 050

REACTIONS (3)
  - Fall [Recovered/Resolved]
  - Type 2 diabetes mellitus [Not Recovered/Not Resolved]
  - Haematoma [Unknown]

NARRATIVE: CASE EVENT DATE: 20230101
